FAERS Safety Report 10090250 (Version 1)
Quarter: 2014Q2

REPORT INFORMATION
  Report Type: Report from Study
  Country: US (occurrence: US)
  Receive Date: 20140421
  Receipt Date: 20140421
  Transmission Date: 20141212
  Serious: Yes (Death)
  Sender: FDA-Public Use
  Company Number: PHEH2014US007807

PATIENT
  Age: 56 Year
  Sex: Male

DRUGS (8)
  1. GILENYA [Suspect]
     Indication: MULTIPLE SCLEROSIS
     Dosage: 0.5 MG, QD
     Route: 048
     Dates: start: 20120206
  2. LISINOPRIL [Concomitant]
  3. LOVAZA [Concomitant]
  4. NEXIUM//ESOMEPRAZOLE MAGNESIUM [Concomitant]
  5. PERCOCET [Concomitant]
  6. SEROQUEL [Concomitant]
  7. SOMA [Concomitant]
  8. TRICOR [Concomitant]

REACTIONS (1)
  - Death [Fatal]
